FAERS Safety Report 4964109-6 (Version None)
Quarter: 2006Q1

REPORT INFORMATION
  Report Type: 
  Country: None (occurrence: None)
  Receive Date: 20060330
  Receipt Date: 20060308
  Transmission Date: 20060701
  Serious: Yes (Other)
  Sender: FDA-Public Use
  Company Number: US200603002230

PATIENT
  Age: 83 Year
  Sex: Female

DRUGS (1)
  1. HUMATROPE [Suspect]
     Indication: HYPOTHALAMO-PITUITARY DISORDERS
     Dosage: 0.6 MG, DAILY (1/D, SUBCUTANEOUS
     Route: 058
     Dates: start: 20040901

REACTIONS (3)
  - MYOCARDIAL INFARCTION [None]
  - NEOPLASM MALIGNANT [None]
  - PNEUMONIA [None]
